FAERS Safety Report 7265920-1 (Version None)
Quarter: 2011Q1

REPORT INFORMATION
  Report Type: 
  Country: None (occurrence: None)
  Receive Date: 20110119
  Receipt Date: 20110114
  Transmission Date: 20110831
  Serious: Yes (Death)
  Sender: FDA-Public Use
  Company Number: 2011SP001836

PATIENT
  Sex: Female

DRUGS (1)
  1. DEXAMETHASONE (DEXAMETHASONE / 000160001 ) [Suspect]
     Indication: PRODUCT USED FOR UNKNOWN INDICATION
     Dosage: 4 MG;Q6H;

REACTIONS (3)
  - BRAIN OEDEMA [None]
  - HYPERGLYCAEMIA [None]
  - METABOLIC ACIDOSIS [None]
